FAERS Safety Report 18174862 (Version 1)
Quarter: 2020Q3

REPORT INFORMATION
  Report Type: Spontaneous
  Country: US (occurrence: US)
  Receive Date: 20200820
  Receipt Date: 20200820
  Transmission Date: 20201103
  Serious: No
  Sender: FDA-Public Use
  Company Number: None

PATIENT
  Age: 49 Year
  Sex: Male
  Weight: 103.5 kg

DRUGS (14)
  1. DEXAMETHASONE 40MG [Concomitant]
     Active Substance: DEXAMETHASONE
  2. ZOFRAN 8MG [Concomitant]
  3. XPOVIO [Suspect]
     Active Substance: SELINEXOR
     Indication: PLASMA CELL MYELOMA
     Dosage: ?          OTHER FREQUENCY:WEEKLY;?
     Route: 048
     Dates: start: 20200430, end: 20200820
  4. ACETYL L?CARNITINE [Concomitant]
     Active Substance: ACETYLCARNITINE
  5. ATIVAN 1MG [Concomitant]
  6. OLANZAPINE 5MG [Concomitant]
     Active Substance: OLANZAPINE
  7. ZOMETA [Concomitant]
     Active Substance: ZOLEDRONIC ACID
  8. ASPIRIN 81MG [Concomitant]
     Active Substance: ASPIRIN
  9. MULTIVITAMIN [Concomitant]
     Active Substance: VITAMINS
  10. ACYCLOVIR 400MG [Concomitant]
     Active Substance: ACYCLOVIR
  11. SELINEXOR 60MG [Concomitant]
  12. VELCADE [Concomitant]
     Active Substance: BORTEZOMIB
  13. BACTRIM DS 800?160MG [Concomitant]
  14. VITAMIN D3 [Concomitant]
     Active Substance: CHOLECALCIFEROL

REACTIONS (1)
  - Disease progression [None]

NARRATIVE: CASE EVENT DATE: 20200820
